FAERS Safety Report 5213694-8 (Version None)
Quarter: 2007Q1

REPORT INFORMATION
  Report Type: 
  Country: None (occurrence: None)
  Receive Date: 20070119
  Receipt Date: 20070109
  Transmission Date: 20070707
  Serious: Yes (Hospitalization, Other)
  Sender: FDA-Public Use
  Company Number: FR-PFIZER INC-2007003314

PATIENT
  Age: 37 Year
  Sex: Female
  Weight: 86 kg

DRUGS (6)
  1. XANAX [Suspect]
     Route: 048
  2. AMITRIPTYLINE HCL [Suspect]
     Route: 048
     Dates: start: 20051120, end: 20051120
  3. MIGRALGINE [Suspect]
     Route: 048
     Dates: start: 20051120, end: 20051120
  4. PROZAC [Suspect]
     Route: 048
  5. CERAZETTE [Suspect]
     Route: 048
     Dates: start: 20030101, end: 20051121
  6. DEPAKOTE [Suspect]
     Dosage: DAILY DOSE:1500MG
     Route: 048

REACTIONS (1)
  - PULMONARY EMBOLISM [None]
